FAERS Safety Report 10011411 (Version 6)
Quarter: 2014Q2

REPORT INFORMATION
  Report Type: Report from Study
  Country: US (occurrence: US)
  Receive Date: 20140314
  Receipt Date: 20140623
  Transmission Date: 20141212
  Serious: Yes (Hospitalization, Other)
  Sender: FDA-Public Use
  Company Number: US-BAYER-2014-026472

PATIENT
  Age: 81 Year
  Sex: Male

DRUGS (3)
  1. NEXAVAR [Suspect]
     Indication: HEPATIC CANCER
     Dosage: 200 MG, TID
     Route: 048
     Dates: start: 20140210, end: 201404
  2. NEXAVAR [Suspect]
     Indication: HEPATIC CANCER
     Dosage: DAILY DOSE 200 MG
     Route: 048
  3. NEXAVAR [Suspect]
     Indication: HEPATIC CANCER
     Dosage: 200 MG, BID
     Route: 065
     Dates: start: 20140609

REACTIONS (7)
  - Skin haemorrhage [None]
  - Diarrhoea [None]
  - Angina pectoris [None]
  - Vertigo [None]
  - Constipation [None]
  - Hospitalisation [None]
  - Tremor [None]
